FAERS Safety Report 4705655-X (Version None)
Quarter: 2005Q2

REPORT INFORMATION
  Report Type: 
  Country: None (occurrence: None)
  Receive Date: 20050630
  Receipt Date: 20050621
  Transmission Date: 20051028
  Serious: Yes (Hospitalization)
  Sender: FDA-Public Use
  Company Number: ERD2002A00060

PATIENT
  Age: 65 Year
  Sex: Male

DRUGS (7)
  1. PIOGLITAZONE HCL [Suspect]
     Indication: DIABETES MELLITUS NON-INSULIN-DEPENDENT
     Dosage: 30 MG ORAL
     Route: 048
     Dates: start: 20020212, end: 20020408
  2. METFORMIN (METFORMIN) [Concomitant]
  3. HUMAN MIXTARD INSULIN (HUMAN MIXTARD) [Concomitant]
  4. FUROSEMIDE [Concomitant]
  5. DIGOXIN [Concomitant]
  6. WARFARIN SODIUM [Concomitant]
  7. CAPTOPRIL [Concomitant]

REACTIONS (6)
  - ANGINA PECTORIS [None]
  - CONDITION AGGRAVATED [None]
  - ELECTROCARDIOGRAM T WAVE AMPLITUDE DECREASED [None]
  - ELECTROCARDIOGRAM T WAVE INVERSION [None]
  - INCORRECT DOSE ADMINISTERED [None]
  - LEFT VENTRICULAR FAILURE [None]
